FAERS Safety Report 18468462 (Version 3)
Quarter: 2020Q4

REPORT INFORMATION
  Report Type: Report from Study
  Country: NL (occurrence: NL)
  Receive Date: 20201105
  Receipt Date: 20201113
  Transmission Date: 20210114
  Serious: Yes (Death)
  Sender: FDA-Public Use
  Company Number: NVSC2020NL296364

PATIENT
  Age: 97 Year
  Sex: Male

DRUGS (1)
  1. ZOMETA [Suspect]
     Active Substance: ZOLEDRONIC ACID
     Indication: PROSTATE CANCER
     Dosage: 1 UNK, Q3MO (1.00 X PER 12 WEEKS)
     Route: 042

REACTIONS (2)
  - Off label use [Unknown]
  - Euthanasia [Fatal]

NARRATIVE: CASE EVENT DATE: 20201030
